FAERS Safety Report 21917103 (Version 1)
Quarter: 2023Q1

REPORT INFORMATION
  Report Type: Spontaneous
  Country: US (occurrence: US)
  Receive Date: 20230126
  Receipt Date: 20230126
  Transmission Date: 20230418
  Serious: No
  Sender: FDA-Public Use
  Company Number: US-009507513-2301USA009001

PATIENT
  Age: 46 Year
  Sex: Male

DRUGS (1)
  1. STROMECTOL [Suspect]
     Active Substance: IVERMECTIN
     Indication: Strongyloidiasis
     Dosage: 200 MICROGRAMS PER KILOGRAM PER DAY

REACTIONS (1)
  - Product use in unapproved indication [Unknown]
